FAERS Safety Report 21154118 (Version 4)
Quarter: 2024Q2

REPORT INFORMATION
  Report Type: Spontaneous
  Country: CA (occurrence: CA)
  Receive Date: 20220801
  Receipt Date: 20240408
  Transmission Date: 20240716
  Serious: Yes (Hospitalization, Other)
  Sender: FDA-Public Use
  Company Number: CA-BAUSCH-BL-2022-018949

PATIENT
  Sex: Male
  Weight: 98 kg

DRUGS (26)
  1. METFORMIN [Suspect]
     Active Substance: METFORMIN HYDROCHLORIDE
     Indication: Product used for unknown indication
     Route: 065
  2. AMLODIPINE BESYLATE [Suspect]
     Active Substance: AMLODIPINE BESYLATE
     Indication: Product used for unknown indication
     Route: 065
  3. AMLODIPINE BESYLATE [Suspect]
     Active Substance: AMLODIPINE BESYLATE
     Route: 065
  4. AMLODIPINE BESYLATE [Suspect]
     Active Substance: AMLODIPINE BESYLATE
     Route: 065
  5. GLICLAZIDE [Suspect]
     Active Substance: GLICLAZIDE
     Indication: Product used for unknown indication
     Route: 065
  6. GLICLAZIDE [Suspect]
     Active Substance: GLICLAZIDE
     Route: 065
  7. IRBESARTAN [Suspect]
     Active Substance: IRBESARTAN
     Indication: Product used for unknown indication
     Route: 065
  8. IRBESARTAN [Suspect]
     Active Substance: IRBESARTAN
     Route: 065
  9. MAYZENT [Suspect]
     Active Substance: SIPONIMOD
     Indication: Secondary progressive multiple sclerosis
     Route: 065
  10. MAYZENT [Suspect]
     Active Substance: SIPONIMOD
     Route: 065
  11. MAYZENT [Suspect]
     Active Substance: SIPONIMOD
     Route: 065
  12. MAYZENT [Suspect]
     Active Substance: SIPONIMOD
     Route: 048
  13. MAYZENT [Suspect]
     Active Substance: SIPONIMOD
     Route: 048
  14. MAYZENT [Suspect]
     Active Substance: SIPONIMOD
     Route: 065
  15. MAYZENT [Suspect]
     Active Substance: SIPONIMOD
     Route: 065
  16. MAYZENT [Suspect]
     Active Substance: SIPONIMOD
     Route: 065
  17. PERINDOPRIL [Suspect]
     Active Substance: PERINDOPRIL
     Indication: Product used for unknown indication
     Dosage: NOT SPECIFIED
     Route: 065
  18. ROSUVASTATIN [Suspect]
     Active Substance: ROSUVASTATIN
     Indication: Product used for unknown indication
     Dosage: NOT SPECIFIED
     Route: 065
  19. CHONDROITIN SULFATE SODIUM;SALICYLATE SODIUM;SODIUM BROMIDE [Concomitant]
     Indication: Product used for unknown indication
     Dosage: CHONDROITIN SULFATE A/SODIUM BROMIDE/SODIUM SALICYLATE
  20. INSULIN ASPART [Concomitant]
     Active Substance: INSULIN ASPART
     Indication: Product used for unknown indication
     Route: 058
  21. INSULIN ASPART [Concomitant]
     Active Substance: INSULIN ASPART
     Route: 058
  22. JARDIANCE [Concomitant]
     Active Substance: EMPAGLIFLOZIN
     Indication: Product used for unknown indication
  23. JARDIANCE [Concomitant]
     Active Substance: EMPAGLIFLOZIN
  24. SEMAGLUTIDE [Concomitant]
     Active Substance: SEMAGLUTIDE
     Indication: Product used for unknown indication
     Dosage: NOT SPECIFIED
     Route: 058
  25. SEMAGLUTIDE [Concomitant]
     Active Substance: SEMAGLUTIDE
     Dosage: NOT SPECIFIED
     Route: 058
  26. TRESIBA [Concomitant]
     Active Substance: INSULIN DEGLUDEC
     Indication: Product used for unknown indication
     Route: 058

REACTIONS (15)
  - Haematuria [Not Recovered/Not Resolved]
  - Dysmetria [Not Recovered/Not Resolved]
  - Gait spastic [Not Recovered/Not Resolved]
  - Hypokinesia [Not Recovered/Not Resolved]
  - Lymphopenia [Not Recovered/Not Resolved]
  - Muscle spasticity [Not Recovered/Not Resolved]
  - Muscular weakness [Not Recovered/Not Resolved]
  - Musculoskeletal discomfort [Not Recovered/Not Resolved]
  - Obstructive sleep apnoea syndrome [Not Recovered/Not Resolved]
  - Urinary incontinence [Not Recovered/Not Resolved]
  - Urine abnormality [Not Recovered/Not Resolved]
  - White blood cell count decreased [Not Recovered/Not Resolved]
  - COVID-19 [Not Recovered/Not Resolved]
  - Urinary tract infection [Not Recovered/Not Resolved]
  - Expanded disability status scale score increased [Not Recovered/Not Resolved]
